FAERS Safety Report 4826223-5 (Version None)
Quarter: 2005Q4

REPORT INFORMATION
  Report Type: 
  Country: None (occurrence: None)
  Receive Date: 20051111
  Receipt Date: 20051103
  Transmission Date: 20060501
  Serious: Yes (Hospitalization)
  Sender: FDA-Public Use
  Company Number: US-KINGPHARMUSA00001-K200501434

PATIENT
  Age: 76 Year
  Sex: Male

DRUGS (3)
  1. ALTACE [Suspect]
     Indication: ESSENTIAL HYPERTENSION
     Dosage: 10 MG, QD
     Route: 048
     Dates: end: 20040211
  2. CORDARONE [Concomitant]
     Indication: ATRIAL FIBRILLATION
     Route: 048
     Dates: end: 20040211
  3. DIGOXIN [Concomitant]
     Indication: ATRIAL FIBRILLATION
     Dosage: UNK, UNK
     Route: 048
     Dates: end: 20040211

REACTIONS (10)
  - ANOREXIA [None]
  - ASTHENIA [None]
  - ATRIAL FIBRILLATION [None]
  - BLOOD CREATININE INCREASED [None]
  - BRADYARRHYTHMIA [None]
  - BRADYCARDIA [None]
  - CARDIOACTIVE DRUG LEVEL INCREASED [None]
  - NAUSEA [None]
  - RENAL FAILURE ACUTE [None]
  - SOMNOLENCE [None]
